FAERS Safety Report 16311654 (Version 1)
Quarter: 2019Q2

REPORT INFORMATION
  Report Type: Report from Study
  Country: FR (occurrence: FR)
  Receive Date: 20190514
  Receipt Date: 20190514
  Transmission Date: 20190711
  Serious: Yes (Death, Hospitalization, Other)
  Sender: FDA-Public Use
  Company Number: FR-JAZZ-2018-FR-001156

PATIENT

DRUGS (26)
  1. KEPPRA [Concomitant]
     Active Substance: LEVETIRACETAM
     Dosage: 500 MG, QD
     Route: 048
  2. ADALAT [Concomitant]
     Active Substance: NIFEDIPINE
     Indication: HYPERTENSION
     Dosage: 40 MG, QD
     Route: 048
     Dates: start: 20171228
  3. COLISTIN SULFATE [Concomitant]
     Active Substance: COLISTIN SULFATE
     Indication: ANTIBIOTIC THERAPY
     Dosage: 3000000 IU, QD
     Route: 048
     Dates: start: 20171224
  4. HEPARIN [Concomitant]
     Active Substance: HEPARIN SODIUM
     Indication: PROPHYLAXIS
     Dosage: 2750 IU, QD
     Route: 042
     Dates: start: 20171021
  5. CICLOSPORIN [Concomitant]
     Active Substance: CYCLOSPORINE
     Dosage: 90 MG, QD
     Route: 042
  6. SOLU-MEDROL [Concomitant]
     Active Substance: METHYLPREDNISOLONE SODIUM SUCCINATE
     Dosage: 60 MG, QD
     Route: 042
  7. ACICLOVIR [Concomitant]
     Active Substance: ACYCLOVIR
     Indication: ANTIVIRAL TREATMENT
     Dosage: 1500 MG, QD
     Route: 042
     Dates: start: 20171024
  8. KEPPRA [Concomitant]
     Active Substance: LEVETIRACETAM
     Indication: ANTICONVULSANT DRUG LEVEL THERAPEUTIC
     Dosage: 500 MG, QD
     Route: 048
     Dates: start: 20171221
  9. SELECTOL [Concomitant]
     Active Substance: CELIPROLOL
     Dosage: 400 MG, QD
     Route: 048
  10. ADALAT [Concomitant]
     Active Substance: NIFEDIPINE
     Dosage: 12.5 MG, QD
     Route: 048
  11. DEFITELIO [Suspect]
     Active Substance: DEFIBROTIDE SODIUM
     Dosage: 25 MG/KG, QD
     Route: 042
     Dates: start: 20171222, end: 20180101
  12. PREDNISONE. [Concomitant]
     Active Substance: PREDNISONE
     Indication: HEADACHE
  13. NEORAL [Concomitant]
     Active Substance: CYCLOSPORINE
     Indication: PROPHYLAXIS AGAINST GRAFT VERSUS HOST DISEASE
     Dosage: 80 MG, QD
     Route: 048
     Dates: start: 20171028
  14. DEFITELIO [Suspect]
     Active Substance: DEFIBROTIDE SODIUM
     Dosage: 18.75 MG/KG, QD
     Dates: start: 20180102, end: 20180110
  15. RUXOLITINIB [Concomitant]
     Active Substance: RUXOLITINIB
     Indication: GRAFT VERSUS HOST DISEASE
     Dosage: 20 MG, QD
     Route: 048
     Dates: start: 20171130
  16. RUXOLITINIB [Concomitant]
     Active Substance: RUXOLITINIB
     Dosage: 20 MG, QD
     Route: 048
  17. AMOXICILLIN. [Concomitant]
     Active Substance: AMOXICILLIN
     Dosage: 1500 MG, QD
     Route: 048
  18. PREDNISONE. [Concomitant]
     Active Substance: PREDNISONE
     Indication: PROPHYLAXIS AGAINST GRAFT VERSUS HOST DISEASE
     Dosage: 36 MG, QD
     Route: 048
     Dates: start: 20171117
  19. CANCIDAS [Concomitant]
     Active Substance: CASPOFUNGIN ACETATE
     Indication: ANTIVIRAL TREATMENT
     Dosage: 50 MG, QD
     Route: 042
  20. MORPHINE [Concomitant]
     Active Substance: MORPHINE
     Indication: ANALGESIC THERAPY
     Dosage: 15 MG, QD
     Route: 042
  21. AMOXICILLIN. [Concomitant]
     Active Substance: AMOXICILLIN
     Indication: ANTIBIOTIC THERAPY
     Dosage: 1500 MG, QD
     Route: 048
     Dates: start: 20171128
  22. SOLU-MEDROL [Concomitant]
     Active Substance: METHYLPREDNISOLONE SODIUM SUCCINATE
     Indication: PRODUCT USED FOR UNKNOWN INDICATION
     Dosage: 22 MG, QD
     Route: 042
     Dates: start: 20171124, end: 20180112
  23. SELECTOL [Concomitant]
     Active Substance: CELIPROLOL
     Indication: HYPERTENSION
     Dosage: 400 MG, QD
     Route: 048
     Dates: start: 20171226
  24. DEFITELIO [Suspect]
     Active Substance: DEFIBROTIDE SODIUM
     Indication: VENOOCCLUSIVE DISEASE
     Dosage: 25 MG/KG, QD
     Route: 042
     Dates: start: 20171120, end: 20171217
  25. CICLOSPORIN [Concomitant]
     Active Substance: CYCLOSPORINE
     Indication: PROPHYLAXIS AGAINST GRAFT VERSUS HOST DISEASE
     Dosage: 70 MG, QD
     Route: 042
     Dates: start: 20171028
  26. ACICLOVIR [Concomitant]
     Active Substance: ACYCLOVIR
     Dosage: 250 MG, QD
     Route: 048

REACTIONS (7)
  - Acute lymphocytic leukaemia recurrent [Fatal]
  - Posterior reversible encephalopathy syndrome [Recovered/Resolved]
  - Venoocclusive disease [Recovered/Resolved]
  - Graft versus host disease [Unknown]
  - Pulmonary oedema [Unknown]
  - Hypertension [Recovered/Resolved]
  - Headache [Unknown]

NARRATIVE: CASE EVENT DATE: 20171022
